FAERS Safety Report 5165037-6 (Version None)
Quarter: 2006Q4

REPORT INFORMATION
  Report Type: 
  Country: None (occurrence: None)
  Receive Date: 20061124
  Receipt Date: 20061109
  Transmission Date: 20070319
  Serious: Yes (Life-Threatening, Other)
  Sender: FDA-Public Use
  Company Number: 2006129766

PATIENT
  Age: 59 Year
  Sex: Female
  Weight: 70 kg

DRUGS (4)
  1. SOLU-MEDROL [Suspect]
     Indication: ALOPECIA
     Dosage: (500 MG, STAT), INTRAVENOUS
     Route: 042
     Dates: start: 20061004, end: 20061004
  2. LEVOTHYROXINE SODIUM [Concomitant]
  3. ESTRADERM [Concomitant]
  4. FISH OIL [Concomitant]

REACTIONS (6)
  - ANAPHYLACTOID REACTION [None]
  - CONFUSIONAL STATE [None]
  - DYSGEUSIA [None]
  - SYNCOPE [None]
  - TACHYCARDIA [None]
  - TREMOR [None]
